FAERS Safety Report 10610991 (Version 2)
Quarter: 2015Q1

REPORT INFORMATION
  Report Type: Spontaneous
  Country: US (occurrence: US)
  Receive Date: 20141126
  Receipt Date: 20150107
  Transmission Date: 20150720
  Serious: Yes (Hospitalization, Other)
  Sender: FDA-Public Use
  Company Number: US-BAYER-2014-174038

PATIENT
  Age: 30 Year
  Sex: Female
  Weight: 68.27 kg

DRUGS (4)
  1. IBUPROFEN. [Concomitant]
     Active Substance: IBUPROFEN
     Indication: PAIN
     Dosage: 600 MG, EVERY 6 HOURS AS NEEDED
     Route: 048
     Dates: start: 20120813
  2. MIRENA [Suspect]
     Active Substance: LEVONORGESTREL
     Indication: CONTRACEPTION
     Dosage: 20 MCG/24HR, CONT
     Route: 015
     Dates: start: 20120920, end: 20121211
  3. MIRENA [Suspect]
     Active Substance: LEVONORGESTREL
     Indication: CONTRACEPTION
     Dosage: 20 MCG/24HR
     Route: 015
     Dates: start: 20120920, end: 20121211
  4. NORCO [Concomitant]
     Active Substance: ACETAMINOPHEN\HYDROCODONE BITARTRATE
     Indication: PAIN
     Dosage: 5-325 MG 2 TABLETS 3 HRS PRN
     Route: 048
     Dates: start: 20120813

REACTIONS (13)
  - Uterine perforation [None]
  - Pelvic pain [None]
  - Emotional distress [None]
  - Marital problem [None]
  - Depression [None]
  - Anxiety [None]
  - Device issue [None]
  - Injury [None]
  - Abdominal pain [None]
  - Internal injury [None]
  - Medical device discomfort [None]
  - Genital haemorrhage [None]
  - Feeling abnormal [None]

NARRATIVE: CASE EVENT DATE: 201211
